FAERS Safety Report 16839501 (Version 1)
Quarter: 2019Q3

REPORT INFORMATION
  Report Type: Spontaneous
  Country: GB (occurrence: GB)
  Receive Date: 20190923
  Receipt Date: 20190923
  Transmission Date: 20191005
  Serious: Yes (Hospitalization, Other)
  Sender: FDA-Public Use
  Company Number: GB-MYLANLABS-2019M1087887

PATIENT
  Age: 92 Year
  Sex: Female
  Weight: 57.15 kg

DRUGS (11)
  1. DIGOXIN. [Concomitant]
     Active Substance: DIGOXIN
  2. ZOLEDRONIC ACID [Suspect]
     Active Substance: ZOLEDRONIC ACID
     Indication: OSTEOPOROSIS
     Dosage: 5 MILLIGRAM
     Route: 042
     Dates: start: 20190327, end: 20190327
  3. LOSARTAN. [Concomitant]
     Active Substance: LOSARTAN
  4. FUROSEMIDE. [Concomitant]
     Active Substance: FUROSEMIDE
  5. BISOPROLOL [Concomitant]
     Active Substance: BISOPROLOL
  6. FOLIC ACID. [Concomitant]
     Active Substance: FOLIC ACID
  7. CALCICHEW [Concomitant]
     Active Substance: CALCIUM CARBONATE
  8. ATORVASTATIN [Concomitant]
     Active Substance: ATORVASTATIN
     Dosage: UNK
  9. DILTIAZEM. [Concomitant]
     Active Substance: DILTIAZEM
  10. SPIRONOLACTONE. [Concomitant]
     Active Substance: SPIRONOLACTONE
  11. WARFARIN [Concomitant]
     Active Substance: WARFARIN

REACTIONS (5)
  - Condition aggravated [Recovering/Resolving]
  - Cellulitis [Unknown]
  - Cardiac failure congestive [Unknown]
  - Muscular weakness [Recovering/Resolving]
  - Pyrexia [Recovering/Resolving]

NARRATIVE: CASE EVENT DATE: 20190327
